FAERS Safety Report 7064808-9 (Version None)
Quarter: 2010Q4

REPORT INFORMATION
  Report Type: 
  Country: None (occurrence: None)
  Receive Date: 20101027
  Receipt Date: 19860620
  Transmission Date: 20110411
  Serious: Yes (Death)
  Sender: FDA-Public Use
  Company Number: FR-ROCHE-860102296001

PATIENT
  Age: 35 Year
  Sex: Female
  Weight: 49 kg

DRUGS (5)
  1. CEFTRIAXONE SODIUM [Suspect]
     Route: 065
  2. CO-TRIMOXAZOLE UNSPEC. [Suspect]
     Route: 048
  3. NYSTATINE [Concomitant]
     Route: 065
  4. GLAFENINE [Concomitant]
     Route: 048
  5. HEXETIDINE [Concomitant]
     Route: 065

REACTIONS (2)
  - DEATH [None]
  - ERYTHEMA MULTIFORME [None]
